FAERS Safety Report 15160634 (Version 1)
Quarter: 2018Q3

REPORT INFORMATION
  Report Type: Spontaneous
  Country: JP (occurrence: JP)
  Receive Date: 20180718
  Receipt Date: 20180718
  Transmission Date: 20181010
  Serious: Yes (Other)
  Sender: FDA-Public Use
  Company Number: JP-BRISTOL-MYERS SQUIBB COMPANY-BMS-2018-066785

PATIENT

DRUGS (1)
  1. ELIQUIS [Suspect]
     Active Substance: APIXABAN
     Indication: TROUSSEAU^S SYNDROME
     Dosage: 5 MG, BID
     Route: 065

REACTIONS (3)
  - Transient ischaemic attack [Unknown]
  - Hemiplegia [Unknown]
  - Product use in unapproved indication [Unknown]
